FAERS Safety Report 7735095-0 (Version None)
Quarter: 2011Q3

REPORT INFORMATION
  Report Type: 
  Country: None (occurrence: None)
  Receive Date: 20110907
  Receipt Date: 20110902
  Transmission Date: 20111222
  Serious: Yes (Life-Threatening, Hospitalization)
  Sender: FDA-Public Use
  Company Number: FR-ELI_LILLY_AND_COMPANY-FR201109000460

PATIENT
  Sex: Male

DRUGS (5)
  1. SECTRAL [Concomitant]
     Dosage: 200 MG, MORNING AND EVENING
     Route: 065
  2. PERINDOPRIL ERBUMINE [Concomitant]
     Dosage: 4 MG, IN THE MORNING
     Route: 065
  3. ASPEGIC 325 [Concomitant]
     Dosage: 100 UG, QD
     Route: 048
     Dates: start: 20110426, end: 20110710
  4. ATORVASTATIN CALCIUM [Concomitant]
     Dosage: 80 MG, EVERY EVENING
     Route: 065
  5. EFFIENT [Suspect]
     Dosage: 10 MG, QD
     Route: 048
     Dates: start: 20110426, end: 20110719

REACTIONS (3)
  - RECTAL HAEMORRHAGE [None]
  - SHOCK [None]
  - ANAEMIA [None]
